FAERS Safety Report 18766016 (Version 1)
Quarter: 2021Q1

REPORT INFORMATION
  Report Type: Spontaneous
  Country: US (occurrence: US)
  Receive Date: 20210120
  Receipt Date: 20210120
  Transmission Date: 20210419
  Serious: Yes (Other)
  Sender: FDA-Public Use
  Company Number: US-BAXTER-2021BAX001062

PATIENT
  Age: 37 Year
  Sex: Female

DRUGS (1)
  1. KETOROLAC TROMETHAMINE INJECTION USP [Suspect]
     Active Substance: KETOROLAC TROMETHAMINE
     Indication: ABDOMINAL PAIN
     Route: 042

REACTIONS (2)
  - Exposure during pregnancy [Unknown]
  - Renal infarct [Recovering/Resolving]
